FAERS Safety Report 14623864 (Version 3)
Quarter: 2018Q1

REPORT INFORMATION
  Report Type: Spontaneous
  Country: US (occurrence: US)
  Receive Date: 20180312
  Receipt Date: 20180319
  Transmission Date: 20180509
  Serious: Yes (Other)
  Sender: FDA-Public Use
  Company Number: US-AMGEN-USASP2018031288

PATIENT
  Age: 77 Year
  Sex: Female
  Weight: 52.15 kg

DRUGS (8)
  1. CIMZIA [Concomitant]
     Active Substance: CERTOLIZUMAB PEGOL
     Dosage: UNK
     Dates: start: 20140909
  2. ENBREL [Suspect]
     Active Substance: ETANERCEPT
     Dosage: 50 MG, QWK
     Route: 065
  3. ASPIRIN. [Concomitant]
     Active Substance: ASPIRIN
     Dosage: UNK
  4. ENBREL [Suspect]
     Active Substance: ETANERCEPT
     Indication: RHEUMATOID ARTHRITIS
     Dosage: UNK
     Route: 065
     Dates: start: 2001, end: 2011
  5. HYDROXYCHLOROQUINE [Concomitant]
     Active Substance: HYDROXYCHLOROQUINE
     Dosage: UNK
  6. ENBREL [Suspect]
     Active Substance: ETANERCEPT
     Dosage: 50 MG, QWK
     Route: 065
     Dates: start: 20180304
  7. METHOTREXATE. [Concomitant]
     Active Substance: METHOTREXATE
     Dosage: UNK
     Dates: end: 2011
  8. NITROGEN MUSTARD [Concomitant]
     Active Substance: MECHLORETHAMINE OXIDE HYDROCHLORIDE
     Dosage: UNK

REACTIONS (8)
  - Bone loss [Unknown]
  - Wrong technique in product usage process [Unknown]
  - Underdose [Unknown]
  - Rheumatoid arthritis [Unknown]
  - Myasthenia gravis [Unknown]
  - Accidental exposure to product [Unknown]
  - Bursitis [Unknown]
  - Osteoporosis [Unknown]

NARRATIVE: CASE EVENT DATE: 2007
